FAERS Safety Report 8946975 (Version 2)
Quarter: 2012Q4

REPORT INFORMATION
  Report Type: 
  Country: GB (occurrence: GB)
  Receive Date: 20121205
  Receipt Date: 20121220
  Transmission Date: 20130627
  Serious: Yes (Life-Threatening, Hospitalization)
  Sender: FDA-Public Use
  Company Number: GB-PFIZER INC-GBWYE261407DEC04

PATIENT
  Age: 47 Year
  Sex: Female
  Weight: 145 kg

DRUGS (4)
  1. IBUPROFEN [Suspect]
     Indication: OSTEOARTHRITIS
     Dosage: 1200-1600mg daily
     Route: 048
     Dates: start: 200401, end: 20041109
  2. VITAMIN C [Concomitant]
     Dosage: 250 mg, UNK
     Route: 048
     Dates: start: 200406, end: 20041109
  3. BENDROFLUMETHIAZIDE [Concomitant]
     Dosage: 2.5 mg, UNK
     Route: 048
     Dates: start: 2002, end: 20041110
  4. MULTIVITAMINS [Concomitant]
     Dosage: 1 DF, UNK
     Route: 048
     Dates: start: 200406, end: 20041109

REACTIONS (4)
  - Overdose [Not Recovered/Not Resolved]
  - Idiopathic thrombocytopenic purpura [Not Recovered/Not Resolved]
  - Haemorrhage [Not Recovered/Not Resolved]
  - Vomiting [Not Recovered/Not Resolved]
